FAERS Safety Report 14313714 (Version 2)
Quarter: 2018Q3

REPORT INFORMATION
  Report Type: Spontaneous
  Country: US (occurrence: US)
  Receive Date: 20171221
  Receipt Date: 20180723
  Transmission Date: 20181010
  Serious: Yes (Hospitalization, Disabling, Other)
  Sender: FDA-Public Use
  Company Number: US-009507513-1712USA005899

PATIENT
  Sex: Female
  Weight: 74.83 kg

DRUGS (2)
  1. NUVARING [Suspect]
     Active Substance: ETHINYL ESTRADIOL\ETONOGESTREL
     Dosage: 1 DF, UNK (STRENGTH: .015/.12 (UNITS NOT PROVIDED)) VAGINAL RING
     Route: 067
     Dates: start: 2011, end: 201608
  2. NUVARING [Suspect]
     Active Substance: ETHINYL ESTRADIOL\ETONOGESTREL
     Indication: CONTRACEPTION
     Dosage: 1 DF, UNK (STRENGTH: .015/.12 (UNITS NOT PROVIDED)) VAGINAL RING
     Route: 067
     Dates: start: 2007

REACTIONS (21)
  - Endometriosis [Unknown]
  - Post-traumatic stress disorder [Unknown]
  - Pruritus [Unknown]
  - Mastitis [Unknown]
  - Lymphadenectomy [Unknown]
  - Musculoskeletal pain [Unknown]
  - Breast pain [Unknown]
  - Maternal exposure before pregnancy [Recovered/Resolved]
  - Salpingo-oophorectomy bilateral [Unknown]
  - Lymphoedema [Unknown]
  - Breast reconstruction [Unknown]
  - Hospitalisation [Unknown]
  - Anxiety [Unknown]
  - Urinary tract infection [Unknown]
  - Neck pain [Unknown]
  - Breast feeding [Unknown]
  - Arthropathy [Unknown]
  - HER-2 positive breast cancer [Unknown]
  - Drug hypersensitivity [Unknown]
  - Ovulation pain [Unknown]
  - Spinal disorder [Unknown]

NARRATIVE: CASE EVENT DATE: 2011
